FAERS Safety Report 8603712-9 (Version None)
Quarter: 2012Q3

REPORT INFORMATION
  Report Type: 
  Country: None (occurrence: None)
  Receive Date: 20120817
  Receipt Date: 20120808
  Transmission Date: 20120928
  Serious: Yes (Other)
  Sender: FDA-Public Use
  Company Number: FR-B.I. PHARMACEUTICALS,INC./RIDGEFIELD-2012-FF-00926FF

PATIENT
  Sex: Female
  Weight: 84 kg

DRUGS (5)
  1. AZILECT [Concomitant]
     Indication: PARKINSON'S DISEASE
     Dosage: 1 MG
     Route: 048
     Dates: end: 20120704
  2. PRAMIPEXOLE DIHYDROCHLORIDE [Suspect]
     Indication: PARKINSON'S DISEASE
     Dosage: 1.05 MG
     Route: 048
     Dates: end: 20120704
  3. LANSOPRAZOLE [Concomitant]
     Indication: JOINT INJURY
     Route: 048
     Dates: start: 20120622, end: 20120702
  4. DESLORATADINE [Concomitant]
     Indication: RHINITIS ALLERGIC
     Route: 048
     Dates: start: 20120622, end: 20120702
  5. KETOPROFEN [Concomitant]
     Indication: JOINT INJURY
     Dosage: 200 MG
     Route: 048
     Dates: start: 20120622, end: 20120702

REACTIONS (1)
  - ABORTION SPONTANEOUS [None]
